FAERS Safety Report 25165080 (Version 2)
Quarter: 2025Q2

REPORT INFORMATION
  Report Type: Report from Study
  Country: GB (occurrence: GB)
  Receive Date: 20250406
  Receipt Date: 20250511
  Transmission Date: 20250716
  Serious: Yes (Hospitalization)
  Sender: ABBVIE
  Company Number: GB-ABBVIE-6212600

PATIENT
  Age: 27 Year
  Sex: Male

DRUGS (1)
  1. RINVOQ [Suspect]
     Active Substance: UPADACITINIB
     Indication: Colitis ulcerative
     Dosage: RINVOQ 30MG MODIFIED-RELEASE TABLETS?LAST ADMIN DATE 2025
     Route: 048
     Dates: start: 202503

REACTIONS (5)
  - Blood test abnormal [Unknown]
  - Rash macular [Unknown]
  - Colitis ulcerative [Unknown]
  - Drug ineffective [Unknown]
  - Appendicitis [Unknown]

NARRATIVE: CASE EVENT DATE: 20250101
